FAERS Safety Report 16309228 (Version 2)
Quarter: 2019Q2

REPORT INFORMATION
  Report Type: Spontaneous
  Country: US (occurrence: US)
  Receive Date: 20190514
  Receipt Date: 20190514
  Transmission Date: 20190711
  Serious: No
  Sender: FDA-Public Use
  Company Number: US-ALLERGAN-1846307US

PATIENT
  Age: 62 Year
  Sex: Female

DRUGS (1)
  1. ACTONEL [Suspect]
     Active Substance: RISEDRONATE SODIUM
     Indication: OSTEOPOROSIS
     Dosage: 150 MG, Q MONTH
     Route: 048
     Dates: start: 20180921, end: 20180921

REACTIONS (7)
  - Nausea [Recovered/Resolved]
  - Abdominal discomfort [Recovered/Resolved]
  - Dizziness [Recovered/Resolved]
  - Vomiting [Recovered/Resolved]
  - Diarrhoea [Recovered/Resolved]
  - Hypoaesthesia [Recovered/Resolved]
  - Oesophageal spasm [Recovered/Resolved]

NARRATIVE: CASE EVENT DATE: 20180921
